FAERS Safety Report 7495865-3 (Version None)
Quarter: 2011Q2

REPORT INFORMATION
  Report Type: 
  Country: None (occurrence: None)
  Receive Date: 20110523
  Receipt Date: 20110520
  Transmission Date: 20111010
  Serious: Yes (Death)
  Sender: FDA-Public Use
  Company Number: FR-SANOFI-AVENTIS-2011SA029191

PATIENT
  Age: 63 Year
  Sex: Male

DRUGS (2)
  1. CABAZITAXEL [Suspect]
     Route: 042
     Dates: start: 20110201, end: 20110201
  2. PREDNISONE TAB [Concomitant]

REACTIONS (4)
  - DISEASE PROGRESSION [None]
  - PRURITUS [None]
  - ASTHENIA [None]
  - JAUNDICE [None]
